FAERS Safety Report 4682408-2 (Version None)
Quarter: 2005Q2

REPORT INFORMATION
  Report Type: 
  Country: None (occurrence: None)
  Receive Date: 20050606
  Receipt Date: 20050523
  Transmission Date: 20051028
  Serious: Yes (Life-Threatening, Hospitalization, Disabling, Other)
  Sender: FDA-Public Use
  Company Number: PHNU2005DE02034

PATIENT
  Age: 52 Year
  Sex: Female
  Weight: 70 kg

DRUGS (8)
  1. CORTISONE [Concomitant]
     Route: 065
  2. MIRTAZAPINE [Concomitant]
     Indication: DEPRESSION
     Dosage: 30 MG DAILY
     Route: 048
  3. URBASON [Concomitant]
     Indication: VASCULITIS
     Dosage: 16 MG DAILY
     Route: 048
  4. SANDIMMUNE [Suspect]
     Indication: RENAL TRANSPLANT
     Dosage: 175 MG DAILY
     Route: 048
     Dates: start: 19931001
  5. RAMIPRIL [Concomitant]
     Indication: HYPERTENSION
     Dosage: 2.5 MG DAILY
     Route: 048
  6. TORSEMIDE [Concomitant]
     Dosage: 10 MG DAILY
     Route: 048
  7. SPIRONOLACTONE [Concomitant]
     Indication: OEDEMA PERIPHERAL
     Dosage: 50 MG DAILY
     Route: 048
  8. LOVASTATIN [Concomitant]
     Indication: LIPIDS INCREASED
     Dosage: 20 MG DAILY
     Route: 048

REACTIONS (9)
  - CEREBRAL DISORDER [None]
  - CEREBRAL INFARCTION [None]
  - CONCOMITANT DISEASE PROGRESSION [None]
  - EPILEPSY [None]
  - LEUKOENCEPHALOPATHY [None]
  - MENTAL DISORDER [None]
  - MOTOR DYSFUNCTION [None]
  - VASCULAR ENCEPHALOPATHY [None]
  - VASCULITIS [None]
